FAERS Safety Report 7014608-0 (Version None)
Quarter: 2010Q3

REPORT INFORMATION
  Report Type: 
  Country: None (occurrence: None)
  Receive Date: 20100927
  Receipt Date: 20100923
  Transmission Date: 20110219
  Serious: Yes (Hospitalization)
  Sender: FDA-Public Use
  Company Number: FR-ROCHE-705457

PATIENT
  Sex: Male
  Weight: 77 kg

DRUGS (13)
  1. BEVACIZUMAB [Suspect]
     Indication: NON-SMALL CELL LUNG CANCER
     Dosage: FORM: INFUSION. LAST DOSE PRIOR TO SAE 20 APRIL 2010. DOSE: 575 MG.
     Route: 042
     Dates: start: 20100216, end: 20100518
  2. CISPLATIN [Suspect]
     Indication: NON-SMALL CELL LUNG CANCER
     Dosage: FORM: INFUSION.LAST DOSE PRIOR TO SAE: 20 APR 2010. DOSAGE FORM: UNKOWN.
     Route: 042
     Dates: start: 20100216
  3. PEMETREXED [Suspect]
     Indication: NON-SMALL CELL LUNG CANCER
     Dosage: FORM: INFUSION. LAST DOSE PRIOR TO SAE: 20 APR 2010.
     Route: 042
     Dates: start: 20100216
  4. LYTOS [Concomitant]
  5. VOLTAREN [Concomitant]
  6. ACETAMINOPHEN [Concomitant]
  7. TOPALGIC [Concomitant]
     Dates: start: 20100215
  8. EFFEXOR [Concomitant]
  9. MIANSERINE [Concomitant]
  10. TETRAZEPAM [Concomitant]
  11. LANSOPRAZOLE [Concomitant]
  12. EMEND [Concomitant]
     Dates: start: 20100215, end: 20100420
  13. DEXAMETHASONE [Concomitant]
     Dates: start: 20100215, end: 20100420

REACTIONS (1)
  - PERICARDIAL EFFUSION [None]
